FAERS Safety Report 8603842-1 (Version None)
Quarter: 2012Q3

REPORT INFORMATION
  Report Type: 
  Country: None (occurrence: None)
  Receive Date: 20120818
  Receipt Date: 20091127
  Transmission Date: 20120928
  Serious: Yes (Death)
  Sender: FDA-Public Use
  Company Number: PHHY2009GE070739

PATIENT
  Sex: Female

DRUGS (1)
  1. IMATINIB MESYLATE [Suspect]
     Dates: start: 20041103

REACTIONS (1)
  - BLAST CRISIS IN MYELOGENOUS LEUKAEMIA [None]
